FAERS Safety Report 6480554-4 (Version None)
Quarter: 2009Q4

REPORT INFORMATION
  Report Type: 
  Country: None (occurrence: None)
  Receive Date: 20091208
  Receipt Date: 20091204
  Transmission Date: 20100525
  Serious: Yes (Hospitalization, Disabling, Other)
  Sender: FDA-Public Use
  Company Number: US-MERCK-0909USA01052

PATIENT
  Age: 14 Year
  Sex: Female
  Weight: 81 kg

DRUGS (8)
  1. SINGULAIR [Suspect]
     Indication: ASTHMA
     Route: 048
     Dates: start: 20060101
  2. SINGULAIR [Suspect]
     Indication: HYPERSENSITIVITY
     Route: 048
     Dates: start: 20060101
  3. ADVAIR DISKUS 100/50 [Concomitant]
     Indication: ASTHMA
     Route: 048
  4. PATADAY [Concomitant]
     Indication: HYPERSENSITIVITY
     Route: 047
  5. ALBUTEROL [Concomitant]
     Indication: ASTHMA
     Route: 051
  6. RHINOCORT [Concomitant]
     Indication: RHINITIS ALLERGIC
     Route: 065
  7. XYZAL [Concomitant]
     Indication: RHINITIS ALLERGIC
     Route: 048
  8. PROAIR (FLUTICASONE PROPIONATE) [Concomitant]
     Route: 065

REACTIONS (6)
  - ABNORMAL BEHAVIOUR [None]
  - AGGRESSION [None]
  - DEPRESSION [None]
  - INTENTIONAL SELF-INJURY [None]
  - OPPOSITIONAL DEFIANT DISORDER [None]
  - OVERDOSE [None]
